FAERS Safety Report 11483101 (Version 1)
Quarter: 2015Q3

REPORT INFORMATION
  Report Type: Spontaneous
  Country: US (occurrence: US)
  Receive Date: 20150903
  Receipt Date: 20150903
  Transmission Date: 20151125
  Serious: No
  Sender: FDA-Public Use
  Company Number: US-ELI_LILLY_AND_COMPANY-US201205007943

PATIENT

DRUGS (1)
  1. CYMBALTA [Suspect]
     Active Substance: DULOXETINE HYDROCHLORIDE
     Indication: POLYNEUROPATHY
     Dosage: UNK, UNKNOWN

REACTIONS (5)
  - Libido decreased [Unknown]
  - Somnolence [Unknown]
  - Muscle twitching [Unknown]
  - Yawning [Unknown]
  - Off label use [Recovered/Resolved]
